FAERS Safety Report 4326611-X (Version None)
Quarter: 2004Q1

REPORT INFORMATION
  Report Type: 
  Country: None (occurrence: None)
  Receive Date: 20040330
  Receipt Date: 20040305
  Transmission Date: 20041129
  Serious: Yes (Hospitalization, Other)
  Sender: FDA-Public Use
  Company Number: PHNU2004DE01170

PATIENT
  Age: 65 Year
  Sex: Male
  Weight: 91 kg

DRUGS (7)
  1. LOCOL [Suspect]
     Indication: HYPERCHOLESTEROLAEMIA
     Dosage: 80 MG, QD
     Route: 048
     Dates: start: 20010101
  2. ASPIRIN [Concomitant]
  3. MAGNESIUM [Concomitant]
  4. ALLOPURINOL [Concomitant]
  5. METO-TABLINEN [Concomitant]
  6. NORVASC [Suspect]
     Indication: CORONARY ARTERY DISEASE
  7. PHYSIOTENS ^GIULINI^ [Concomitant]

REACTIONS (5)
  - ARTERIAL BYPASS OPERATION [None]
  - ARTERITIS CORONARY [None]
  - CORONARY ARTERY DISEASE [None]
  - CORONARY ARTERY STENOSIS [None]
  - WEIGHT INCREASED [None]
